FAERS Safety Report 8233234 (Version 5)
Quarter: 2012Q4

REPORT INFORMATION
  Report Type: 
  Country: US (occurrence: US)
  Receive Date: 20111107
  Receipt Date: 20121114
  Transmission Date: 20130627
  Serious: Yes (Hospitalization, Other)
  Sender: FDA-Public Use
  Company Number: US-ACTELION-A-US2007-14345

PATIENT
  Age: 59 Year
  Sex: Female

DRUGS (5)
  1. TRACLEER [Suspect]
     Indication: PULMONARY ARTERIAL HYPERTENSION
     Dosage: UNK mg, UNK
     Route: 048
     Dates: start: 200412
  2. IRON [Concomitant]
  3. COUMADIN [Concomitant]
  4. BENADRYL [Concomitant]
  5. ANTIHYPERTENSIVES [Concomitant]

REACTIONS (10)
  - Breast cancer [Unknown]
  - Mastectomy [Unknown]
  - Small intestine carcinoma [Unknown]
  - Drug dose omission [Unknown]
  - Blood iron decreased [Unknown]
  - Dyspnoea [Unknown]
  - Anaemia [Unknown]
  - Fatigue [Unknown]
  - Small intestinal obstruction [Unknown]
  - Small intestinal resection [Unknown]
